FAERS Safety Report 10957579 (Version 1)
Quarter: 2015Q1

REPORT INFORMATION
  Report Type: Spontaneous
  Country: US (occurrence: None)
  Receive Date: 20150325
  Receipt Date: 20150325
  Transmission Date: 20150721
  Serious: Yes (Hospitalization)
  Sender: FDA-Public Use
  Company Number: None

PATIENT
  Age: 31 Year
  Sex: Female
  Weight: 48.08 kg

DRUGS (4)
  1. HYPERTONIC SALINE [Concomitant]
  2. ALBUTEROL. [Concomitant]
     Active Substance: ALBUTEROL
  3. COLISTIMETHATE [Suspect]
     Active Substance: COLISTIMETHATE SODIUM
     Indication: LUNG INFECTION
     Dosage: 1 VIAL
     Route: 055
     Dates: start: 20150201, end: 20150228
  4. CENTRUM VITAMIN [Concomitant]

REACTIONS (3)
  - Middle insomnia [None]
  - Dyspnoea [None]
  - Pulmonary function test decreased [None]

NARRATIVE: CASE EVENT DATE: 20150318
